FAERS Safety Report 5381495-6 (Version None)
Quarter: 2007Q2

REPORT INFORMATION
  Report Type: 
  Country: None (occurrence: None)
  Receive Date: 20070629
  Receipt Date: 20070206
  Transmission Date: 20071010
  Serious: Yes (Hospitalization)
  Sender: FDA-Public Use
  Company Number: 2006147197

PATIENT
  Age: 47 Year
  Sex: Female
  Weight: 52.2 kg

DRUGS (7)
  1. ZOLOFT [Suspect]
     Indication: MYELODYSPLASTIC SYNDROME
     Dosage: 100 MG (100 MG, 1 IN 1 D);
     Dates: end: 20061101
  2. AZACITIDINE (AZACITIDINE) [Suspect]
     Dosage: 88 MG (1 IN 1 D), SUBCUTANEOUS
     Route: 058
     Dates: start: 20061106, end: 20061108
  3. QUINAPRIL AND HYDROCHLOROTHIAZIDE (HYDROCHLOROTHIAZIDE, QUINAPRIL HYDR [Concomitant]
  4. PRAVASTATIN [Concomitant]
  5. NISOLDIPINE (NISOLDIPINE) [Concomitant]
  6. LORATADINE [Concomitant]
  7. ACCURETIC [Concomitant]

REACTIONS (3)
  - BLOOD CREATININE ABNORMAL [None]
  - BLOOD UREA ABNORMAL [None]
  - PANCREATITIS [None]
